FAERS Safety Report 8784634 (Version 3)
Quarter: 2013Q1

REPORT INFORMATION
  Report Type: Spontaneous
  Country: CA (occurrence: None)
  Receive Date: 20120831
  Receipt Date: 20130307
  Transmission Date: 20140127
  Serious: Yes (Hospitalization, Other)
  Sender: FDA-Public Use
  Company Number: ADR-2012-01595

PATIENT
  Sex: Male

DRUGS (1)
  1. BACLOFEN [Suspect]
     Dosage: 136.87 MCG/DAY

REACTIONS (11)
  - Muscle spasticity [None]
  - Nephrolithiasis [None]
  - Cystitis [None]
  - Fall [None]
  - Medical device discomfort [None]
  - Muscle spasms [None]
  - Hypoacusis [None]
  - Device kink [None]
  - Hypertonia [None]
  - Body temperature decreased [None]
  - Hearing impaired [None]
